FAERS Safety Report 19430353 (Version 1)
Quarter: 2021Q2

REPORT INFORMATION
  Report Type: Spontaneous
  Country: BR (occurrence: BR)
  Receive Date: 20210617
  Receipt Date: 20210617
  Transmission Date: 20210717
  Serious: Yes (Hospitalization, Other)
  Sender: FDA-Public Use
  Company Number: BR-NOVOPROD-814139

PATIENT
  Age: 24 Year
  Sex: Female
  Weight: 68 kg

DRUGS (5)
  1. LEVOTHYROXINE. [Concomitant]
     Active Substance: LEVOTHYROXINE
     Dosage: 75 ???G
     Route: 065
  2. INSULIN ASPART [Suspect]
     Active Substance: INSULIN ASPART
     Indication: TYPE 1 DIABETES MELLITUS
     Dosage: 18 IU, QD, MORNING
     Route: 065
  3. INSULIN GLARGINE [Concomitant]
     Active Substance: INSULIN GLARGINE
     Indication: TYPE 1 DIABETES MELLITUS
     Dosage: 22 IU, QD (IN THE MORNING)
     Route: 065
  4. FXT [Concomitant]
     Indication: BINGE EATING
  5. FXT [Concomitant]
     Indication: ANXIETY DISORDER
     Dosage: 20 MG, QD
     Route: 065

REACTIONS (7)
  - Pyelonephritis [Unknown]
  - Diabetes mellitus inadequate control [Unknown]
  - Urinary tract infection [Unknown]
  - Blood glucose fluctuation [Unknown]
  - Hypoglycaemia [Unknown]
  - Urinary tract infection [Unknown]
  - Nephrolithiasis [Unknown]

NARRATIVE: CASE EVENT DATE: 20180715
